FAERS Safety Report 23444917 (Version 1)
Quarter: 2024Q1

REPORT INFORMATION
  Report Type: Spontaneous
  Country: US (occurrence: US)
  Receive Date: 20240125
  Receipt Date: 20240125
  Transmission Date: 20240409
  Serious: Yes (Life-Threatening, Hospitalization, Other)
  Sender: FDA-Public Use
  Company Number: US-SANDOZ-SDZ2024US006454

PATIENT
  Age: 60 Year
  Sex: Female

DRUGS (2)
  1. CLOFAZIMINE [Suspect]
     Active Substance: CLOFAZIMINE
     Indication: Mycobacterium abscessus infection
     Dosage: 100 MG
     Route: 048
     Dates: start: 20220422, end: 20240108
  2. CEFEPIME [Concomitant]
     Active Substance: CEFEPIME HYDROCHLORIDE
     Indication: Product used for unknown indication
     Dosage: 2000 MG
     Route: 065
     Dates: end: 20240108

REACTIONS (2)
  - Ischaemic cerebral infarction [Recovered/Resolved with Sequelae]
  - Chronic obstructive pulmonary disease [Recovered/Resolved with Sequelae]

NARRATIVE: CASE EVENT DATE: 20231203
